FAERS Safety Report 9934102 (Version 1)
Quarter: 2014Q1

REPORT INFORMATION
  Report Type: Spontaneous
  Country: US (occurrence: US)
  Receive Date: 20140228
  Receipt Date: 20140228
  Transmission Date: 20141002
  Serious: No
  Sender: FDA-Public Use
  Company Number: US-ABBVIE-13P-163-1083905-00

PATIENT
  Age: 84 Year
  Sex: Male
  Weight: 97.61 kg

DRUGS (6)
  1. ANDROGEL 1% PACKETS [Suspect]
     Indication: BLOOD TESTOSTERONE DECREASED
     Route: 061
     Dates: start: 201303
  2. BENICAR HCT [Concomitant]
     Indication: HYPERTENSION
  3. SIMVASTATIN [Concomitant]
     Indication: BLOOD CHOLESTEROL INCREASED
  4. NEXIUM [Concomitant]
     Indication: PRODUCT USED FOR UNKNOWN INDICATION
  5. ZOLPIDEM [Concomitant]
     Indication: SLEEP DISORDER
  6. SERTRALINE [Concomitant]
     Indication: SLEEP DISORDER

REACTIONS (1)
  - Middle insomnia [Not Recovered/Not Resolved]
